FAERS Safety Report 4926642-2 (Version None)
Quarter: 2006Q1

REPORT INFORMATION
  Report Type: 
  Country: None (occurrence: None)
  Receive Date: 20060228
  Receipt Date: 20050516
  Transmission Date: 20060701
  Serious: No
  Sender: FDA-Public Use
  Company Number: US-GLAXOSMITHKLINE-A0558812A

PATIENT
  Sex: Male

DRUGS (5)
  1. LAMICTAL [Suspect]
     Indication: BIPOLAR DISORDER
     Dosage: 100MG TWICE PER DAY
     Route: 048
     Dates: start: 20040701, end: 20050319
  2. WELLBUTRIN SR [Concomitant]
  3. BUSPAR [Concomitant]
  4. CHLORAL HYDRATE [Concomitant]
  5. PROPECIA [Concomitant]

REACTIONS (4)
  - DRUG ERUPTION [None]
  - RASH [None]
  - VISION BLURRED [None]
  - WEIGHT DECREASED [None]
